APPROVED DRUG PRODUCT: DROPERIDOL
Active Ingredient: DROPERIDOL
Strength: 2.5MG/ML
Dosage Form/Route: INJECTABLE;INJECTION
Application: A072123 | Product #001 | TE Code: AP
Applicant: AMERICAN REGENT INC
Approved: Oct 24, 1988 | RLD: No | RS: Yes | Type: RX